FAERS Safety Report 19757826 (Version 1)
Quarter: 2021Q3

REPORT INFORMATION
  Report Type: Spontaneous
  Country: US (occurrence: US)
  Receive Date: 20210827
  Receipt Date: 20210827
  Transmission Date: 20211014
  Serious: No
  Sender: FDA-Public Use
  Company Number: US-PERRIGO-21US009371

PATIENT
  Age: 84 Year
  Sex: Male
  Weight: 69.84 kg

DRUGS (3)
  1. DICLOFENAC SODIUM. [Suspect]
     Active Substance: DICLOFENAC SODIUM
     Dosage: APPROX. 2 G, QOD
     Route: 061
     Dates: start: 202107
  2. DICLOFENAC SODIUM. [Suspect]
     Active Substance: DICLOFENAC SODIUM
     Indication: ARTHRALGIA
     Dosage: APPROX. 2 G, BID
     Route: 061
     Dates: start: 202106, end: 202107
  3. DICLOFENAC SODIUM. [Suspect]
     Active Substance: DICLOFENAC SODIUM
     Dosage: APPROX. 2 G, QD
     Route: 061
     Dates: start: 202107, end: 202107

REACTIONS (3)
  - Product administered at inappropriate site [Not Recovered/Not Resolved]
  - Wrong technique in product usage process [Not Recovered/Not Resolved]
  - Incorrect dose administered [Not Recovered/Not Resolved]

NARRATIVE: CASE EVENT DATE: 202106
